FAERS Safety Report 15328578 (Version 1)
Quarter: 2018Q4

REPORT INFORMATION
  Report Type: Spontaneous
  Country: GB (occurrence: GB)
  Receive Date: 20180829
  Receipt Date: 20180829
  Transmission Date: 20190204
  Serious: No
  Sender: FDA-Public Use
  Company Number: GB-MARKSANS PHARMA LIMITED-2054395

PATIENT
  Sex: Female

DRUGS (1)
  1. IBUPROFEN MOLECULE FROM UK MARKET [Suspect]
     Active Substance: IBUPROFEN

REACTIONS (3)
  - Urticaria [None]
  - Dizziness [None]
  - Fatigue [None]
